FAERS Safety Report 14165107 (Version 1)
Quarter: 2017Q4

REPORT INFORMATION
  Report Type: Spontaneous
  Country: CN (occurrence: CN)
  Receive Date: 20171107
  Receipt Date: 20171107
  Transmission Date: 20180321
  Serious: Yes (Hospitalization, Other)
  Sender: FDA-Public Use
  Company Number: CN-PFIZER INC-2017473500

PATIENT
  Age: 57 Year
  Sex: Female
  Weight: 62 kg

DRUGS (4)
  1. LIPITOR [Suspect]
     Active Substance: ATORVASTATIN CALCIUM
     Indication: CORONARY ARTERY DISEASE
     Dosage: 20 MG, 1X/DAY
     Route: 048
     Dates: start: 20170729, end: 20170801
  2. SULPERAZON [Suspect]
     Active Substance: CEFOPERAZONE SODIUM\SULBACTAM SODIUM
     Indication: CHOLECYSTITIS
     Dosage: 2 G, 2X/DAY
     Route: 041
     Dates: start: 20170731, end: 20170804
  3. TUO SU [Suspect]
     Active Substance: ORNIDAZOLE
     Indication: CHOLECYSTITIS
     Dosage: 0.5 G, 2X/DAY
     Route: 041
     Dates: start: 20170731, end: 20170804
  4. PANTOPRAZOLE SODIUM. [Suspect]
     Active Substance: PANTOPRAZOLE SODIUM
     Indication: CHRONIC GASTRITIS
     Dosage: 80 MG, 2X/DAY
     Route: 041
     Dates: start: 20170729, end: 20170812

REACTIONS (2)
  - Liver injury [Recovering/Resolving]
  - Cholecystitis [Recovering/Resolving]

NARRATIVE: CASE EVENT DATE: 20170731
